FAERS Safety Report 10175434 (Version 2)
Quarter: 2014Q2

REPORT INFORMATION
  Report Type: Spontaneous
  Country: FR (occurrence: FR)
  Receive Date: 20140515
  Receipt Date: 20140620
  Transmission Date: 20141212
  Serious: Yes (Hospitalization)
  Sender: FDA-Public Use
  Company Number: FR-B.I. PHARMACEUTICALS,INC./RIDGEFIELD-2014-BI-21196FF

PATIENT
  Age: 47 Year
  Sex: Male

DRUGS (5)
  1. SIFROL [Suspect]
     Indication: PARKINSON^S DISEASE
     Dosage: 3.15 MG
     Route: 048
     Dates: start: 2013
  2. SINEMET [Suspect]
     Indication: PARKINSON^S DISEASE
     Dosage: 300 NR
     Route: 048
     Dates: start: 20140506
  3. AZILECT [Concomitant]
     Route: 065
  4. TOPALGIC [Concomitant]
     Route: 065
  5. LYRICA [Concomitant]
     Route: 065

REACTIONS (4)
  - Fear [Recovered/Resolved]
  - Panic attack [Unknown]
  - Hallucination [Recovered/Resolved]
  - Delusion [Recovered/Resolved]
